FAERS Safety Report 7890424-2 (Version None)
Quarter: 2011Q4

REPORT INFORMATION
  Report Type: 
  Country: None (occurrence: None)
  Receive Date: 20111103
  Receipt Date: 20110721
  Transmission Date: 20120403
  Serious: No
  Sender: FDA-Public Use
  Company Number: US-AMGEN-USASP2011037160

PATIENT
  Age: 33 Year
  Sex: Male

DRUGS (2)
  1. METHOTREXATE [Concomitant]
     Dosage: UNK
  2. ENBREL [Suspect]
     Indication: RHEUMATOID ARTHRITIS
     Dosage: 50 MG, QWK
     Dates: start: 20100331

REACTIONS (7)
  - JOINT SWELLING [None]
  - PAIN [None]
  - ABDOMINAL PAIN [None]
  - ARTHRALGIA [None]
  - NASOPHARYNGITIS [None]
  - ASTHENIA [None]
  - GAIT DISTURBANCE [None]
